FAERS Safety Report 21339268 (Version 1)
Quarter: 2022Q3

REPORT INFORMATION
  Report Type: Spontaneous
  Country: AU (occurrence: AU)
  Receive Date: 20220915
  Receipt Date: 20220915
  Transmission Date: 20221026
  Serious: Yes (Death, Hospitalization, Other)
  Sender: FDA-Public Use
  Company Number: AU-GILEAD-2022-0583768

PATIENT
  Sex: Female

DRUGS (2)
  1. TRODELVY [Suspect]
     Active Substance: SACITUZUMAB GOVITECAN-HZIY
     Indication: Triple negative breast cancer
     Dosage: ^DOSED AT 75% OF OPTIMAL DOSES (WEIGHT NOT PROVIDED; EXACT DOSAGE UNKNOWN)^, C1D1 AND C1D2
     Route: 065
  2. TRODELVY [Suspect]
     Active Substance: SACITUZUMAB GOVITECAN-HZIY
     Dosage: DRUG RESTARTED ON UNKNOWN DATE
     Route: 065

REACTIONS (5)
  - Death [Fatal]
  - Disease progression [Unknown]
  - Neutropenia [Recovered/Resolved]
  - Alopecia [Not Recovered/Not Resolved]
  - Off label use [Unknown]
